FAERS Safety Report 21583077 (Version 1)
Quarter: 2022Q4

REPORT INFORMATION
  Report Type: Spontaneous
  Country: US (occurrence: None)
  Receive Date: 20221110
  Receipt Date: 20221110
  Transmission Date: 20230113
  Serious: Yes (Hospitalization)
  Sender: FDA-Public Use
  Company Number: None

PATIENT
  Age: 80 Year
  Sex: Male
  Weight: 97 kg

DRUGS (2)
  1. CYCLOBENZAPRINE [Suspect]
     Active Substance: CYCLOBENZAPRINE
     Indication: Lumbar radiculopathy
     Dosage: OTHER FREQUENCY : AM;?
     Route: 048
     Dates: start: 20221009, end: 20221014
  2. PREDNISONE [Suspect]
     Active Substance: PREDNISONE
     Indication: Lumbar radiculopathy
     Dosage: OTHER FREQUENCY : PRN;?
     Route: 048
     Dates: start: 20221009, end: 20221014

REACTIONS (16)
  - Mental status changes [None]
  - Fall [None]
  - Speech disorder [None]
  - Movement disorder [None]
  - Hallucination, visual [None]
  - Urinary retention [None]
  - Back pain [None]
  - Asthenia [None]
  - Residual urine volume increased [None]
  - Mental disorder [None]
  - Anticholinergic syndrome [None]
  - Infection [None]
  - Nephrolithiasis [None]
  - Presyncope [None]
  - Presyncope [None]
  - Confusional state [None]

NARRATIVE: CASE EVENT DATE: 20221012
